FAERS Safety Report 21795059 (Version 1)
Quarter: 2022Q4

REPORT INFORMATION
  Report Type: Spontaneous
  Country: KR (occurrence: KR)
  Receive Date: 20221229
  Receipt Date: 20221229
  Transmission Date: 20230112
  Serious: Yes (Other)
  Sender: FDA-Public Use
  Company Number: KR-MYLANLABS-2022M1147268

PATIENT
  Age: 57 Year
  Sex: Female

DRUGS (1)
  1. NEURONTIN [Suspect]
     Active Substance: GABAPENTIN
     Indication: Intervertebral disc disorder
     Dosage: 100 MILLIGRAM, QD
     Route: 065
     Dates: start: 20210111, end: 20210113

REACTIONS (4)
  - Hallucination [Recovered/Resolved]
  - Throat irritation [Recovered/Resolved]
  - Dry mouth [Recovered/Resolved]
  - Off label use [Unknown]

NARRATIVE: CASE EVENT DATE: 20210111
